FAERS Safety Report 7504853-X (Version None)
Quarter: 2011Q2

REPORT INFORMATION
  Report Type: 
  Country: None (occurrence: None)
  Receive Date: 20110526
  Receipt Date: 20110520
  Transmission Date: 20111010
  Serious: Yes (Other)
  Sender: FDA-Public Use
  Company Number: US-AMGEN-USASP2011026581

PATIENT
  Age: 31 Year
  Sex: Female

DRUGS (7)
  1. IVIGLOB-EX [Concomitant]
  2. NPLATE [Suspect]
     Indication: IDIOPATHIC THROMBOCYTOPENIC PURPURA
     Dates: start: 20090724, end: 20100811
  3. RITUXIMAB [Concomitant]
  4. WINRHO [Concomitant]
  5. VITAMIN D [Concomitant]
  6. PLAQUENIL [Concomitant]
     Dosage: UNK
  7. CORTICOSTEROIDS [Concomitant]

REACTIONS (3)
  - PLATELET COUNT DECREASED [None]
  - THROMBOCYTOSIS [None]
  - PLATELET COUNT ABNORMAL [None]
